FAERS Safety Report 18735006 (Version 1)
Quarter: 2021Q1

REPORT INFORMATION
  Report Type: Spontaneous
  Country: US (occurrence: US)
  Receive Date: 20210113
  Receipt Date: 20210113
  Transmission Date: 20210419
  Serious: No
  Sender: FDA-Public Use
  Company Number: None

PATIENT
  Age: 73 Year
  Sex: Female
  Weight: 83.7 kg

DRUGS (13)
  1. KEPPRA PO [Concomitant]
  2. PROCHLORPERAZINE PO [Concomitant]
  3. ASPIRIN PO [Concomitant]
  4. NIFEDIPINE ER PO [Concomitant]
  5. VENTOLIN HFA IN [Concomitant]
  6. PRAVASTATIN PO [Concomitant]
  7. OMEPRAZOLE PO [Concomitant]
  8. DEXAMETHASONE PO [Concomitant]
  9. COLACE PO [Concomitant]
  10. TRAZODONE PO [Concomitant]
  11. TEMOZOLOMIDE. [Suspect]
     Active Substance: TEMOZOLOMIDE
     Indication: BRAIN NEOPLASM MALIGNANT
     Route: 048
     Dates: start: 20201219
  12. TEMOZOLOMIDE. [Suspect]
     Active Substance: TEMOZOLOMIDE
     Indication: BRAIN NEOPLASM MALIGNANT
     Route: 048
     Dates: start: 20201219
  13. TRAMADOL PO [Concomitant]

REACTIONS (3)
  - Fatigue [None]
  - Alopecia [None]
  - Swelling face [None]

NARRATIVE: CASE EVENT DATE: 20210101
